FAERS Safety Report 19095487 (Version 1)
Quarter: 2021Q2

REPORT INFORMATION
  Report Type: Report from Study
  Country: CN (occurrence: CN)
  Receive Date: 20210406
  Receipt Date: 20210406
  Transmission Date: 20210717
  Serious: Yes (Death, Hospitalization)
  Sender: FDA-Public Use
  Company Number: CN-TEVA-2021-CN-1899599

PATIENT
  Sex: Male

DRUGS (55)
  1. TREANDA [Suspect]
     Active Substance: BENDAMUSTINE HYDROCHLORIDE
     Indication: DIFFUSE LARGE B-CELL LYMPHOMA
     Route: 042
     Dates: start: 20200711
  2. POLATUZUMAB VEDOTIN. [Suspect]
     Active Substance: POLATUZUMAB VEDOTIN
     Indication: DIFFUSE LARGE B-CELL LYMPHOMA
     Route: 042
     Dates: start: 20200711
  3. RITUXIMAB. [Suspect]
     Active Substance: RITUXIMAB
     Indication: DIFFUSE LARGE B-CELL LYMPHOMA
     Route: 042
     Dates: start: 20200710
  4. MECOBALAMIN [Concomitant]
     Active Substance: METHYLCOBALAMIN
     Indication: NEUROPATHY PERIPHERAL
     Route: 048
     Dates: start: 20180904, end: 20200630
  5. SULFAMETHOXAZOLE [Concomitant]
     Active Substance: SULFAMETHOXAZOLE
     Indication: PROPHYLAXIS
     Route: 065
     Dates: start: 20200710
  6. HEPARIN SODIUM. [Concomitant]
     Active Substance: HEPARIN SODIUM
     Indication: PROPHYLAXIS
     Route: 065
     Dates: start: 20200710, end: 20200713
  7. TROPISETRON HYDROCHLORIDE [Concomitant]
     Active Substance: TROPISETRON HYDROCHLORIDE
     Route: 065
     Dates: start: 20200711, end: 20200712
  8. TROPISETRON HYDROCHLORIDE [Concomitant]
     Active Substance: TROPISETRON HYDROCHLORIDE
     Route: 065
     Dates: start: 20200713, end: 20200716
  9. OXYCODONE AND ACETAMINOPHEN [Concomitant]
     Active Substance: ACETAMINOPHEN\OXYCODONE HYDROCHLORIDE
     Indication: PAIN
     Route: 048
     Dates: start: 20200706, end: 20200804
  10. MORPHINE HYDROCHLORIDE [Concomitant]
     Active Substance: MORPHINE HYDROCHLORIDE
     Indication: ARTHRALGIA
  11. OMEPRAZOLE SODIUM [Concomitant]
     Active Substance: OMEPRAZOLE SODIUM
     Route: 065
     Dates: start: 20200710, end: 20200712
  12. TROPISETRON HYDROCHLORIDE [Concomitant]
     Active Substance: TROPISETRON HYDROCHLORIDE
     Route: 065
     Dates: start: 20200819, end: 20200820
  13. FUROSEMIDE. [Concomitant]
     Active Substance: FUROSEMIDE
     Indication: VOMITING
     Route: 065
     Dates: start: 20200712, end: 20200712
  14. SODIUM BICARBONATE. [Concomitant]
     Active Substance: SODIUM BICARBONATE
     Route: 065
     Dates: start: 20200729, end: 20200731
  15. CEFOPERAZONE SODIUM SULBACTAM SODIUM [Concomitant]
     Indication: ABDOMINAL PAIN UPPER
     Route: 065
     Dates: start: 20200826, end: 20200830
  16. DIPHENHYDRAMINE HYDROCHLORIDE. [Concomitant]
     Active Substance: DIPHENHYDRAMINE HYDROCHLORIDE
     Indication: PROPHYLAXIS
     Dosage: 100 MILLIGRAM DAILY;
     Route: 065
     Dates: start: 20200710, end: 20200711
  17. DIPHENHYDRAMINE HYDROCHLORIDE. [Concomitant]
     Active Substance: DIPHENHYDRAMINE HYDROCHLORIDE
     Dosage: 100 MILLIGRAM DAILY;
     Route: 065
     Dates: start: 20200729, end: 20200729
  18. PEGYLATED RECOMBINANT HUMAN GRANULOCYTE COLONY?STIMULATING FACTOR [Concomitant]
     Route: 065
     Dates: start: 20200801, end: 20200801
  19. OMEPRAZOLE SODIUM [Concomitant]
     Active Substance: OMEPRAZOLE SODIUM
     Route: 065
     Dates: start: 20200819, end: 20200820
  20. MORPHINE SULFATE. [Concomitant]
     Active Substance: MORPHINE SULFATE
     Indication: PAIN
     Dosage: TABLET, SUSTAINED RELEASE
     Route: 065
     Dates: start: 20200711, end: 20200713
  21. GANCICLOVIR. [Concomitant]
     Active Substance: GANCICLOVIR
     Indication: PROPHYLAXIS
     Route: 065
     Dates: start: 20200710
  22. IBUPROFEN SUSTAINED RELEASE [Concomitant]
     Indication: PROPHYLAXIS
     Route: 065
     Dates: start: 20200710, end: 20200711
  23. IBUPROFEN SUSTAINED RELEASE [Concomitant]
     Indication: PAIN IN EXTREMITY
     Route: 065
     Dates: start: 20200819, end: 20200819
  24. IBUPROFEN SUSTAINED RELEASE [Concomitant]
     Route: 065
     Dates: start: 20200824, end: 20200826
  25. TROPISETRON HYDROCHLORIDE [Concomitant]
     Active Substance: TROPISETRON HYDROCHLORIDE
     Indication: VOMITING
     Dosage: TABLET, SUSTAINED RELEASE
     Route: 065
     Dates: start: 20200729, end: 20200801
  26. ONDANSETRON HYDROCHLORIDE. [Concomitant]
     Active Substance: ONDANSETRON HYDROCHLORIDE
     Indication: VOMITING
     Route: 065
     Dates: start: 20200713, end: 20200716
  27. ONDANSETRON HYDROCHLORIDE. [Concomitant]
     Active Substance: ONDANSETRON HYDROCHLORIDE
     Indication: NAUSEA
     Route: 065
     Dates: start: 20200820, end: 20200820
  28. SODIUM BICARBONATE. [Concomitant]
     Active Substance: SODIUM BICARBONATE
     Route: 065
     Dates: start: 20200819, end: 20200821
  29. OXYCODONE AND ACETAMINOPHEN [Concomitant]
     Active Substance: ACETAMINOPHEN\OXYCODONE HYDROCHLORIDE
     Indication: PAIN IN EXTREMITY
  30. MORPHINE HYDROCHLORIDE [Concomitant]
     Active Substance: MORPHINE HYDROCHLORIDE
     Indication: PAIN
     Route: 065
     Dates: start: 20200711, end: 20200711
  31. DIPHENHYDRAMINE HYDROCHLORIDE. [Concomitant]
     Active Substance: DIPHENHYDRAMINE HYDROCHLORIDE
     Dosage: 100 MILLIGRAM DAILY;
     Route: 065
     Dates: start: 20200819, end: 20200819
  32. IBUPROFEN SUSTAINED RELEASE [Concomitant]
     Indication: PAIN
     Route: 065
     Dates: start: 20200729, end: 20200729
  33. OMEPRAZOLE. [Concomitant]
     Active Substance: OMEPRAZOLE
     Indication: PROPHYLAXIS
     Route: 065
     Dates: start: 20200729, end: 20200801
  34. OXYCODONE AND ACETAMINOPHEN [Concomitant]
     Active Substance: ACETAMINOPHEN\OXYCODONE HYDROCHLORIDE
     Indication: ARTHRALGIA
  35. PEGYLATED RECOMBINANT HUMAN GRANULOCYTE COLONY?STIMULATING FACTOR [Concomitant]
     Indication: NEUTROPENIA
     Route: 065
     Dates: start: 20200714, end: 20200714
  36. OMEPRAZOLE SODIUM [Concomitant]
     Active Substance: OMEPRAZOLE SODIUM
     Route: 065
     Dates: start: 20200729, end: 20200801
  37. TROPISETRON HYDROCHLORIDE [Concomitant]
     Active Substance: TROPISETRON HYDROCHLORIDE
     Dosage: TABLET, SUSTAINED RELEASE
     Route: 065
     Dates: start: 20200819, end: 20200820
  38. ALLOPURINOL. [Concomitant]
     Active Substance: ALLOPURINOL
     Route: 065
     Dates: start: 20200819, end: 20200821
  39. INDOMETACIN [Concomitant]
     Active Substance: INDOMETHACIN
     Route: 065
     Dates: start: 20200712, end: 20200712
  40. MORPHINE HYDROCHLORIDE [Concomitant]
     Active Substance: MORPHINE HYDROCHLORIDE
     Indication: PAIN IN EXTREMITY
  41. PREDNISONE ACETATE [Concomitant]
     Active Substance: PREDNISONE ACETATE
     Dosage: 100 MILLIGRAM DAILY;
     Route: 048
     Dates: start: 20200729, end: 20200729
  42. PEGYLATED RECOMBINANT HUMAN GRANULOCYTE COLONY?STIMULATING FACTOR [Concomitant]
     Route: 065
     Dates: start: 20200821, end: 20200821
  43. PEGYLATED RECOMBINANT HUMAN GRANULOCYTE COLONY?STIMULATING FACTOR [Concomitant]
     Route: 065
     Dates: start: 20200829, end: 20200901
  44. TROPISETRON HYDROCHLORIDE [Concomitant]
     Active Substance: TROPISETRON HYDROCHLORIDE
     Indication: PAIN
     Dosage: TABLET, SUSTAINED RELEASE
     Route: 065
     Dates: start: 20200711, end: 20200712
  45. TROPISETRON HYDROCHLORIDE [Concomitant]
     Active Substance: TROPISETRON HYDROCHLORIDE
     Dosage: TABLET, SUSTAINED RELEASE
     Route: 065
     Dates: start: 20200819, end: 20200819
  46. SODIUM BICARBONATE. [Concomitant]
     Active Substance: SODIUM BICARBONATE
     Route: 065
     Dates: start: 20200710, end: 20200713
  47. MONTMORILLONITE [Concomitant]
     Active Substance: MONTMORILLONITE
     Indication: DIARRHOEA
     Dosage: 12 GRAM DAILY;
     Route: 048
     Dates: start: 20200802, end: 20200802
  48. PREDNISONE ACETATE [Concomitant]
     Active Substance: PREDNISONE ACETATE
     Indication: PROPHYLAXIS
     Dosage: 100 MILLIGRAM DAILY;
     Route: 048
     Dates: start: 20200710, end: 20200711
  49. PREDNISONE ACETATE [Concomitant]
     Active Substance: PREDNISONE ACETATE
     Dosage: 100 MILLIGRAM DAILY;
     Route: 048
     Dates: start: 20200819, end: 20200819
  50. IBUPROFEN SUSTAINED RELEASE [Concomitant]
     Indication: ARTHRALGIA
     Route: 065
     Dates: start: 20200804, end: 20200806
  51. LIDOCAINE HYDROCHLORIDE. [Concomitant]
     Active Substance: LIDOCAINE HYDROCHLORIDE
     Indication: LOCAL ANAESTHESIA
     Route: 065
     Dates: start: 20200703, end: 20200703
  52. TROPISETRON HYDROCHLORIDE [Concomitant]
     Active Substance: TROPISETRON HYDROCHLORIDE
     Indication: PROPHYLAXIS
     Dosage: TABLET, SUSTAINED RELEASE
     Route: 065
     Dates: start: 20200713, end: 20200716
  53. METOCLOPRAMIDE DIHYDROCHLORIDE [Concomitant]
     Indication: PROPHYLAXIS
     Route: 065
     Dates: start: 20200730, end: 20200731
  54. ALLOPURINOL. [Concomitant]
     Active Substance: ALLOPURINOL
     Route: 065
     Dates: start: 20200710, end: 20200713
  55. ALLOPURINOL. [Concomitant]
     Active Substance: ALLOPURINOL
     Route: 065
     Dates: start: 20200729, end: 20200731

REACTIONS (3)
  - Death [Fatal]
  - Neutrophil count decreased [Recovered/Resolved]
  - Pyrexia [Recovered/Resolved]

NARRATIVE: CASE EVENT DATE: 20200730
